FAERS Safety Report 7865113-0 (Version None)
Quarter: 2011Q4

REPORT INFORMATION
  Report Type: 
  Country: None (occurrence: None)
  Receive Date: 20111028
  Receipt Date: 20101018
  Transmission Date: 20120403
  Serious: No
  Sender: FDA-Public Use
  Company Number: US-GLAXOSMITHKLINE-A0887375A

PATIENT
  Age: 71 Year
  Sex: Male

DRUGS (7)
  1. PULMICORT [Concomitant]
  2. PAXIL [Concomitant]
  3. SIMVASTATIN [Concomitant]
  4. AMIODARONE HCL [Concomitant]
  5. MOBIC [Concomitant]
  6. ADVAIR DISKUS 100/50 [Suspect]
     Indication: CHRONIC OBSTRUCTIVE PULMONARY DISEASE
     Dosage: 1PUFF PER DAY
     Route: 055
     Dates: start: 19970101
  7. SPIRIVA [Concomitant]

REACTIONS (2)
  - DYSPNOEA [None]
  - PRODUCT QUALITY ISSUE [None]
